FAERS Safety Report 20059966 (Version 3)
Quarter: 2021Q4

REPORT INFORMATION
  Report Type: Spontaneous
  Country: US (occurrence: None)
  Receive Date: 20211111
  Receipt Date: 20211213
  Transmission Date: 20220304
  Serious: No
  Sender: FDA-Public Use
  Company Number: 2021A802548

PATIENT
  Sex: Female
  Weight: 93.1 kg

DRUGS (2)
  1. BUDESONIDE\FORMOTEROL\GLYCOPYRRONIUM [Suspect]
     Active Substance: BUDESONIDE\FORMOTEROL\GLYCOPYRRONIUM
     Indication: Chronic obstructive pulmonary disease
     Dosage: 2 PUFFS TWICE A DAY
     Route: 055
     Dates: start: 20210901, end: 20211103
  2. ALBUTEROL [Concomitant]
     Active Substance: ALBUTEROL

REACTIONS (5)
  - Laryngitis viral [Unknown]
  - Dysphonia [Unknown]
  - Wrong technique in product usage process [Unknown]
  - Device use issue [Unknown]
  - Drug delivery system issue [Unknown]
